FAERS Safety Report 8563916-0 (Version None)
Quarter: 2012Q3

REPORT INFORMATION
  Report Type: 
  Country: None (occurrence: None)
  Receive Date: 20120713
  Receipt Date: 20120629
  Transmission Date: 20120928
  Serious: Yes (Hospitalization)
  Sender: FDA-Public Use
  Company Number: 2012PROUSA01480

PATIENT
  Age: 69 Year
  Sex: Male

DRUGS (2)
  1. PROVENGE [Suspect]
     Indication: PROSTATE CANCER METASTATIC
     Dosage: 250 ML, SINGLE, INTRAVENOUS
     Dates: start: 20120517, end: 20120517
  2. PROVENGE [Suspect]
     Indication: PROSTATE CANCER METASTATIC
     Dosage: 250 ML, SINGLE, INTRAVENOUS;
     Route: 042
     Dates: start: 20120412, end: 20120412

REACTIONS (8)
  - PNEUMONIA [None]
  - ASTHENIA [None]
  - URINARY TRACT OBSTRUCTION [None]
  - ADVERSE EVENT [None]
  - METABOLIC ENCEPHALOPATHY [None]
  - MENTAL STATUS CHANGES [None]
  - URINARY TRACT INFECTION [None]
  - URINARY RETENTION [None]
